FAERS Safety Report 7401149-1 (Version None)
Quarter: 2011Q2

REPORT INFORMATION
  Report Type: 
  Country: None (occurrence: None)
  Receive Date: 20110407
  Receipt Date: 20110331
  Transmission Date: 20111010
  Serious: Yes (Other)
  Sender: FDA-Public Use
  Company Number: US-PFIZER INC-2009296613

PATIENT
  Sex: Male

DRUGS (17)
  1. ZOLOFT [Suspect]
     Dosage: UNK
  2. DOXEPIN HCL [Suspect]
     Dosage: UNK
  3. MIRTAZAPINE [Suspect]
     Dosage: UNK
  4. DEPAKOTE [Suspect]
     Dosage: UNK
  5. EFFEXOR XR [Suspect]
     Indication: DEPRESSION
     Dosage: 75 MG, 1X/DAY
     Route: 048
     Dates: start: 19930101
  6. SEROQUEL [Suspect]
     Dosage: UNK
  7. PROZAC [Suspect]
     Dosage: UNK
  8. PRISTIQ [Suspect]
     Indication: DEPRESSION
     Dosage: 50 MG, 1X/DAY
     Route: 048
     Dates: start: 20090316
  9. WELLBUTRIN [Suspect]
     Dosage: UNK
  10. PAROXETINE [Suspect]
     Dosage: UNK
  11. ZYPREXA [Suspect]
     Dosage: UNK
  12. MULTIVITAMIN [Concomitant]
     Dosage: UNK
  13. TRAZODONE HCL [Suspect]
     Dosage: UNK
  14. FISH OIL [Concomitant]
     Dosage: UNK
  15. LEXAPRO [Suspect]
     Dosage: UNK
  16. CYMBALTA [Suspect]
     Dosage: UNK
  17. PAXIL [Suspect]
     Dosage: UNK

REACTIONS (12)
  - DIARRHOEA [None]
  - MUSCLE TWITCHING [None]
  - DECREASED APPETITE [None]
  - NIGHTMARE [None]
  - DYSKINESIA [None]
  - TREMOR [None]
  - DRUG INEFFECTIVE [None]
  - SUICIDE ATTEMPT [None]
  - DRUG EFFECT DECREASED [None]
  - DRY MOUTH [None]
  - CONSTIPATION [None]
  - AGEUSIA [None]
